FAERS Safety Report 17926067 (Version 10)
Quarter: 2022Q1

REPORT INFORMATION
  Report Type: Report from Study
  Country: US (occurrence: US)
  Receive Date: 20200622
  Receipt Date: 20220209
  Transmission Date: 20220424
  Serious: Yes (Other)
  Sender: FDA-Public Use
  Company Number: US-NOVARTISPH-NVSC2020US174623

PATIENT
  Age: 39 Year
  Sex: Female

DRUGS (1)
  1. MAYZENT [Suspect]
     Active Substance: SIPONIMOD
     Indication: Product used for unknown indication
     Dosage: 2 MG, QD
     Route: 048
     Dates: start: 20200529, end: 20200619

REACTIONS (8)
  - Seizure [Unknown]
  - Multiple sclerosis relapse [Unknown]
  - Malaise [Unknown]
  - Dyspnoea [Unknown]
  - Memory impairment [Unknown]
  - SARS-CoV-2 test positive [Unknown]
  - Intentional product misuse [Unknown]
  - Product dose omission issue [Unknown]

NARRATIVE: CASE EVENT DATE: 20200605
